FAERS Safety Report 4895578-8 (Version None)
Quarter: 2006Q1

REPORT INFORMATION
  Report Type: 
  Country: None (occurrence: None)
  Receive Date: 20060130
  Receipt Date: 20051031
  Transmission Date: 20060701
  Serious: Yes (Other)
  Sender: FDA-Public Use
  Company Number: US-ROCHE-423326

PATIENT
  Age: 17 Year
  Sex: Female

DRUGS (3)
  1. ACCUTANE [Suspect]
     Route: 048
     Dates: start: 20050901, end: 20051015
  2. ACCUTANE [Suspect]
     Route: 048
     Dates: start: 20050605, end: 20050831
  3. CONTRACEPTIVE [Concomitant]
     Route: 023
     Dates: end: 20060111

REACTIONS (2)
  - HEPATITIS C [None]
  - INFECTIOUS MONONUCLEOSIS [None]
